FAERS Safety Report 25004830 (Version 1)
Quarter: 2025Q1

REPORT INFORMATION
  Report Type: Spontaneous
  Country: CA (occurrence: CA)
  Receive Date: 20250224
  Receipt Date: 20250224
  Transmission Date: 20250408
  Serious: Yes (Hospitalization, Other)
  Sender: PFIZER
  Company Number: CA-PFIZER INC-202500039960

PATIENT
  Age: 63 Year
  Sex: Male

DRUGS (15)
  1. RUXIENCE [Suspect]
     Active Substance: RITUXIMAB-PVVR
     Indication: Rheumatoid arthritis
     Route: 042
     Dates: start: 20240820
  2. ACTEMRA [Concomitant]
     Active Substance: TOCILIZUMAB
  3. AMITRIPTYLINE [Concomitant]
     Active Substance: AMITRIPTYLINE
  4. BISOPROLOL [Concomitant]
     Active Substance: BISOPROLOL
     Dosage: 5 MG, 1X/DAY
     Route: 065
  5. FLUOXETINE [Concomitant]
     Active Substance: FLUOXETINE HYDROCHLORIDE
  6. FERROUS GLUCONATE [Concomitant]
     Active Substance: FERROUS GLUCONATE
  7. LIPITOR [Concomitant]
     Active Substance: ATORVASTATIN CALCIUM
     Route: 065
  8. METHOTREXATE [Concomitant]
     Active Substance: METHOTREXATE
     Indication: Rheumatoid arthritis
     Dosage: 8 DF, 1X/DAY (2.5 MG X 8 TABLETS)
     Route: 065
  9. PREDNISONE [Concomitant]
     Active Substance: PREDNISONE
     Dosage: 10 MG, 1X/DAY
     Route: 065
  10. QUINAPRIL [Concomitant]
     Active Substance: QUINAPRIL
  11. RABEPRAZOLE [Concomitant]
     Active Substance: RABEPRAZOLE
  12. RISEDRONATE SODIUM [Concomitant]
     Active Substance: RISEDRONATE SODIUM
  13. TRAMADOL [Concomitant]
     Active Substance: TRAMADOL
  14. CHOLECALCIFEROL [Concomitant]
     Active Substance: CHOLECALCIFEROL
  15. XARELTO [Concomitant]
     Active Substance: RIVAROXABAN

REACTIONS (1)
  - Hepatic cirrhosis [Unknown]
